FAERS Safety Report 17401327 (Version 1)
Quarter: 2020Q1

REPORT INFORMATION
  Report Type: Spontaneous
  Country: CA (occurrence: CA)
  Receive Date: 20200211
  Receipt Date: 20200211
  Transmission Date: 20200409
  Serious: Yes (Other)
  Sender: FDA-Public Use
  Company Number: CA-USP-000064

PATIENT
  Age: 61 Year

DRUGS (8)
  1. TICAGRELOR. [Suspect]
     Active Substance: TICAGRELOR
     Indication: POST CARDIAC ARREST SYNDROME
     Route: 065
  2. HEPARIN [Suspect]
     Active Substance: HEPARIN SODIUM
     Indication: POST CARDIAC ARREST SYNDROME
     Route: 065
  3. PERINDOPRIL [Suspect]
     Active Substance: PERINDOPRIL
     Indication: POST CARDIAC ARREST SYNDROME
     Route: 065
  4. NITROGLYCERIN. [Suspect]
     Active Substance: NITROGLYCERIN
     Indication: POST CARDIAC ARREST SYNDROME
     Route: 065
  5. ACETYLSALICYLIC ACID [Suspect]
     Active Substance: ASPIRIN
     Indication: POST CARDIAC ARREST SYNDROME
     Route: 065
  6. METOPROLOL. [Suspect]
     Active Substance: METOPROLOL
     Indication: POST CARDIAC ARREST SYNDROME
     Route: 065
  7. PARACETAMOL [Suspect]
     Active Substance: ACETAMINOPHEN
     Indication: POST CARDIAC ARREST SYNDROME
     Route: 065
  8. PANTOPRAZOLE [Suspect]
     Active Substance: PANTOPRAZOLE
     Indication: POST CARDIAC ARREST SYNDROME
     Route: 065

REACTIONS (3)
  - Off label use [Unknown]
  - Product use in unapproved indication [Unknown]
  - Liver injury [Unknown]
